FAERS Safety Report 12344097 (Version 2)
Quarter: 2016Q3

REPORT INFORMATION
  Report Type: Spontaneous
  Country: US (occurrence: US)
  Receive Date: 20160507
  Receipt Date: 20160822
  Transmission Date: 20161109
  Serious: Yes (Hospitalization, Other)
  Sender: FDA-Public Use
  Company Number: US-JNJFOC-20160416275

PATIENT
  Age: 77 Year

DRUGS (1)
  1. XARELTO [Suspect]
     Active Substance: RIVAROXABAN
     Indication: ANTICOAGULANT THERAPY
     Dosage: 10-20MG APPROXIMATELY
     Route: 048
     Dates: start: 20151001, end: 201602

REACTIONS (3)
  - Internal haemorrhage [Unknown]
  - Cerebrovascular accident [Unknown]
  - Haematochezia [Unknown]

NARRATIVE: CASE EVENT DATE: 20160202
